FAERS Safety Report 11910822 (Version 2)
Quarter: 2016Q1

REPORT INFORMATION
  Report Type: Spontaneous
  Country: US (occurrence: US)
  Receive Date: 20160112
  Receipt Date: 20160328
  Transmission Date: 20160526
  Serious: Yes (Hospitalization)
  Sender: FDA-Public Use
  Company Number: US-JNJFOC-20160102636

PATIENT
  Age: 71 Year
  Sex: Male

DRUGS (3)
  1. IMBRUVICA [Suspect]
     Active Substance: IBRUTINIB
     Indication: CHRONIC LYMPHOCYTIC LEUKAEMIA
     Route: 048
     Dates: start: 20141007
  2. PREDNISONE. [Concomitant]
     Active Substance: PREDNISONE
  3. INSULIN [Concomitant]
     Active Substance: INSULIN NOS

REACTIONS (8)
  - Sleep disorder [Unknown]
  - Localised infection [Recovered/Resolved]
  - Mouth haemorrhage [Not Recovered/Not Resolved]
  - White blood cell count increased [Recovering/Resolving]
  - Memory impairment [Unknown]
  - Eye disorder [Unknown]
  - Gait disturbance [Unknown]
  - Epistaxis [Unknown]

NARRATIVE: CASE EVENT DATE: 201501
